FAERS Safety Report 20228997 (Version 1)
Quarter: 2021Q4

REPORT INFORMATION
  Report Type: Report from Study
  Country: EG (occurrence: EG)
  Receive Date: 20211225
  Receipt Date: 20211225
  Transmission Date: 20220303
  Serious: Yes (Other)
  Sender: FDA-Public Use
  Company Number: EG-NOVARTISPH-NVSC2021EG294111

PATIENT
  Age: 25 Year
  Sex: Female

DRUGS (2)
  1. GILENYA [Suspect]
     Active Substance: FINGOLIMOD HYDROCHLORIDE
     Indication: Multiple sclerosis
     Dosage: 0.5 MG, QD
     Route: 048
     Dates: start: 2015, end: 20211205
  2. CORTISONE [Concomitant]
     Active Substance: CORTISONE
     Indication: Immunosuppression
     Dosage: UNK, QMO
     Route: 065
     Dates: start: 20211205

REACTIONS (6)
  - Cataract [Not Recovered/Not Resolved]
  - Depression [Recovered/Resolved]
  - Spinal cord disorder [Unknown]
  - Multiple sclerosis relapse [Recovered/Resolved]
  - Dyspnoea [Recovered/Resolved]
  - Hypoaesthesia [Recovered/Resolved]

NARRATIVE: CASE EVENT DATE: 20210401
